FAERS Safety Report 23987444 (Version 1)
Quarter: 2024Q2

REPORT INFORMATION
  Report Type: Spontaneous
  Country: ES (occurrence: ES)
  Receive Date: 20240618
  Receipt Date: 20240618
  Transmission Date: 20240716
  Serious: Yes (Hospitalization)
  Sender: FDA-Public Use
  Company Number: None

PATIENT
  Age: 83 Year
  Sex: Female

DRUGS (1)
  1. EZETIMIBE [Suspect]
     Active Substance: EZETIMIBE
     Indication: Myocardial ischaemia
     Dosage: EZETIMIBA (7432A)
     Route: 065
     Dates: start: 20230701

REACTIONS (1)
  - Hepatotoxicity [Recovering/Resolving]

NARRATIVE: CASE EVENT DATE: 20231212
